FAERS Safety Report 19509706 (Version 1)
Quarter: 2021Q3

REPORT INFORMATION
  Report Type: Spontaneous
  Country: US (occurrence: US)
  Receive Date: 20210709
  Receipt Date: 20210709
  Transmission Date: 20211014
  Serious: Yes (Other)
  Sender: FDA-Public Use
  Company Number: US-CIPLA LTD.-2021US04754

PATIENT

DRUGS (8)
  1. IMIQUIMOD. [Concomitant]
     Active Substance: IMIQUIMOD
     Indication: SQUAMOUS CELL CARCINOMA
     Dosage: 5% CREAM
     Route: 061
  2. IMIQUIMOD. [Concomitant]
     Active Substance: IMIQUIMOD
     Indication: ANOGENITAL WARTS
  3. VALACYCLOVIR [Suspect]
     Active Substance: VALACYCLOVIR HYDROCHLORIDE
     Indication: GENITAL HERPES SIMPLEX
     Dosage: 0.5 TO 1 G DAILY
     Route: 065
  4. VALACYCLOVIR [Suspect]
     Active Substance: VALACYCLOVIR HYDROCHLORIDE
     Indication: HERPES OPHTHALMIC
  5. ACYCLOVIR. [Suspect]
     Active Substance: ACYCLOVIR
     Indication: HERPES OPHTHALMIC
  6. IMIQUIMOD. [Concomitant]
     Active Substance: IMIQUIMOD
     Indication: SCROTAL CANCER
  7. IMIQUIMOD. [Concomitant]
     Active Substance: IMIQUIMOD
     Indication: URETHRAL CANCER
  8. ACYCLOVIR. [Suspect]
     Active Substance: ACYCLOVIR
     Indication: GENITAL HERPES SIMPLEX
     Dosage: UNK
     Route: 065

REACTIONS (2)
  - Drug resistance [Unknown]
  - Treatment noncompliance [Unknown]
